FAERS Safety Report 5339694-5 (Version None)
Quarter: 2007Q2

REPORT INFORMATION
  Report Type: 
  Country: None (occurrence: None)
  Receive Date: 20070404
  Receipt Date: 20060920
  Transmission Date: 20071010
  Serious: Yes (Other)
  Sender: FDA-Public Use
  Company Number: 2006112298

PATIENT
  Age: 51 Year
  Sex: Male

DRUGS (1)
  1. GEODON [Suspect]
     Indication: SCHIZOAFFECTIVE DISORDER
     Dosage: (160 MG)
     Dates: start: 20060101, end: 20060301

REACTIONS (1)
  - PSYCHOTIC DISORDER [None]
